FAERS Safety Report 25492052 (Version 1)
Quarter: 2025Q2

REPORT INFORMATION
  Report Type: Spontaneous
  Country: CN (occurrence: CN)
  Receive Date: 20250630
  Receipt Date: 20250630
  Transmission Date: 20250717
  Serious: Yes (Hospitalization)
  Sender: BAXTER
  Company Number: None

PATIENT
  Age: 75 Year
  Sex: Female
  Weight: 58 kg

DRUGS (2)
  1. CYCLOPHOSPHAMIDE [Suspect]
     Active Substance: CYCLOPHOSPHAMIDE
     Indication: Nephrotic syndrome
     Dosage: 0.4 G, QD IVGTT
     Route: 041
     Dates: start: 20250422, end: 20250422
  2. SODIUM CHLORIDE [Suspect]
     Active Substance: SODIUM CHLORIDE
     Indication: Medication dilution
     Dosage: 250 ML, QD
     Route: 041
     Dates: start: 20250422, end: 20250422

REACTIONS (3)
  - Blood creatine phosphokinase increased [Recovering/Resolving]
  - Myalgia [Recovering/Resolving]
  - Asthenia [Recovering/Resolving]

NARRATIVE: CASE EVENT DATE: 20250520
